FAERS Safety Report 23023392 (Version 1)
Quarter: 2023Q4

REPORT INFORMATION
  Report Type: Spontaneous
  Country: CN (occurrence: CN)
  Receive Date: 20231003
  Receipt Date: 20231003
  Transmission Date: 20240109
  Serious: Yes (Hospitalization, Other)
  Sender: FDA-Public Use
  Company Number: CN-GLAXOSMITHKLINE-CN2023GSK135207

PATIENT

DRUGS (1)
  1. ZEJULA [Suspect]
     Active Substance: NIRAPARIB
     Indication: Ovarian cancer
     Dosage: 200 MG, QD
     Route: 048
     Dates: start: 20230801, end: 20230906

REACTIONS (12)
  - Myelosuppression [Recovering/Resolving]
  - Haemorrhage subcutaneous [Unknown]
  - Gingival bleeding [Recovered/Resolved]
  - Asthenia [Recovering/Resolving]
  - Decreased appetite [Recovering/Resolving]
  - Sputum increased [Recovering/Resolving]
  - Palpitations [Unknown]
  - Listless [Recovering/Resolving]
  - Oral disorder [Unknown]
  - Back pain [Recovering/Resolving]
  - General physical health deterioration [Recovered/Resolved]
  - Skin discolouration [Unknown]

NARRATIVE: CASE EVENT DATE: 20230907
